FAERS Safety Report 17669735 (Version 4)
Quarter: 2020Q3

REPORT INFORMATION
  Report Type: Report from Study
  Country: CN (occurrence: CN)
  Receive Date: 20200415
  Receipt Date: 20200703
  Transmission Date: 20201102
  Serious: Yes (Other)
  Sender: FDA-Public Use
  Company Number: CN-ROCHE-1980576

PATIENT
  Age: 59 Year
  Sex: Male
  Weight: 72 kg

DRUGS (1)
  1. AVASTIN [Suspect]
     Active Substance: BEVACIZUMAB
     Indication: LUNG ADENOCARCINOMA
     Route: 041
     Dates: start: 20170110, end: 20200218

REACTIONS (20)
  - Rash [Unknown]
  - Hypertension [Unknown]
  - Influenza [Unknown]
  - Pyrexia [Unknown]
  - Cough [Unknown]
  - Blood pressure fluctuation [Not Recovered/Not Resolved]
  - Protein urine present [Unknown]
  - Labile blood pressure [Unknown]
  - Protein urine present [Unknown]
  - Glomerulonephritis chronic [Recovering/Resolving]
  - Protein urine present [Recovering/Resolving]
  - Renal failure [Recovering/Resolving]
  - Decreased appetite [Unknown]
  - Cerebral infarction [Unknown]
  - Nephritis [Unknown]
  - Angiopathy [Unknown]
  - Mass [Unknown]
  - Nasopharyngitis [Unknown]
  - Blood uric acid increased [Unknown]
  - Weight decreased [Unknown]

NARRATIVE: CASE EVENT DATE: 20190221
